FAERS Safety Report 8505043-4 (Version None)
Quarter: 2012Q3

REPORT INFORMATION
  Report Type: 
  Country: None (occurrence: None)
  Receive Date: 20120712
  Receipt Date: 20120710
  Transmission Date: 20120928
  Serious: Yes (Death)
  Sender: FDA-Public Use
  Company Number: JP-BRACCO-005940

PATIENT
  Age: 87 Year
  Sex: Female

DRUGS (2)
  1. IOPAMIDOL-370 [Suspect]
     Indication: COMPUTERISED TOMOGRAM
     Route: 042
     Dates: start: 20120601, end: 20120601
  2. IOPAMIDOL-370 [Suspect]
     Indication: TRISMUS
     Route: 042
     Dates: start: 20120601, end: 20120601

REACTIONS (1)
  - CARDIO-RESPIRATORY ARREST [None]
